FAERS Safety Report 12012889 (Version 3)
Quarter: 2016Q1

REPORT INFORMATION
  Report Type: Spontaneous
  Country: US (occurrence: US)
  Receive Date: 20160205
  Receipt Date: 20160328
  Transmission Date: 20160526
  Serious: Yes (Other)
  Sender: FDA-Public Use
  Company Number: CHPA2016US001806

PATIENT
  Age: 60 Year
  Sex: Female

DRUGS (3)
  1. VOLTAREN [Suspect]
     Active Substance: DICLOFENAC SODIUM
     Indication: PAIN
     Dosage: UNK
  2. MELOXICAM. [Concomitant]
     Active Substance: MELOXICAM
     Indication: PRODUCT USED FOR UNKNOWN INDICATION
     Route: 065
  3. VOLTAREN [Suspect]
     Active Substance: DICLOFENAC SODIUM
     Indication: RHEUMATOID ARTHRITIS
     Dosage: UNK
     Route: 061
     Dates: start: 2014

REACTIONS (10)
  - Therapeutic response unexpected [Unknown]
  - Rheumatoid arthritis [Unknown]
  - Inappropriate schedule of drug administration [Unknown]
  - Injury [Recovering/Resolving]
  - Pain [Recovering/Resolving]
  - Product use issue [Unknown]
  - Constipation [Recovering/Resolving]
  - Tendon rupture [Recovering/Resolving]
  - Fear [Recovering/Resolving]
  - Drug administered at inappropriate site [Unknown]

NARRATIVE: CASE EVENT DATE: 2015
